FAERS Safety Report 9557740 (Version 2)
Quarter: 2016Q2

REPORT INFORMATION
  Report Type: Spontaneous
  Country: US (occurrence: US)
  Receive Date: 20130724
  Receipt Date: 20160620
  Transmission Date: 20160815
  Serious: Yes (Hospitalization)
  Sender: FDA-Public Use
  Company Number: PHEH2012US016541

PATIENT
  Age: 54 Year
  Sex: Female
  Weight: 64.4 kg

DRUGS (1)
  1. GLEEVEC [Suspect]
     Active Substance: IMATINIB MESYLATE
     Indication: CHRONIC MYELOID LEUKAEMIA
     Route: 048
     Dates: start: 20120224, end: 201205

REACTIONS (11)
  - Blister [Unknown]
  - Pruritus [Unknown]
  - Drug hypersensitivity [Unknown]
  - Rash [Unknown]
  - Eye swelling [Unknown]
  - Swelling [Unknown]
  - Dyspnoea [Unknown]
  - Staphylococcal infection [Unknown]
  - Rash generalised [Recovered/Resolved]
  - Skin exfoliation [Recovered/Resolved]
  - Weight increased [Unknown]

NARRATIVE: CASE EVENT DATE: 20120305
